FAERS Safety Report 16416653 (Version 1)
Quarter: 2019Q2

REPORT INFORMATION
  Report Type: Report from Study
  Country: FR (occurrence: FR)
  Receive Date: 20190611
  Receipt Date: 20190611
  Transmission Date: 20190711
  Serious: Yes (Other)
  Sender: FDA-Public Use
  Company Number: FR-JNJFOC-20190608850

PATIENT

DRUGS (8)
  1. IBRUTINIB [Suspect]
     Active Substance: IBRUTINIB
     Indication: CHRONIC LYMPHOCYTIC LEUKAEMIA
     Route: 048
  2. IBRUTINIB [Suspect]
     Active Substance: IBRUTINIB
     Indication: MARGINAL ZONE LYMPHOMA
     Route: 048
  3. TINZAPARIN [Concomitant]
     Active Substance: TINZAPARIN
     Indication: ANTICOAGULANT THERAPY
     Route: 065
  4. IBRUTINIB [Suspect]
     Active Substance: IBRUTINIB
     Indication: DIFFUSE LARGE B-CELL LYMPHOMA
     Route: 048
  5. CLOPIDOGREL [Concomitant]
     Active Substance: CLOPIDOGREL BISULFATE
     Indication: ANTIPLATELET THERAPY
     Route: 065
  6. IBRUTINIB [Suspect]
     Active Substance: IBRUTINIB
     Indication: WALDENSTROM^S MACROGLOBULINAEMIA
     Route: 048
  7. RIVAROXABAN [Concomitant]
     Active Substance: RIVAROXABAN
     Indication: ANTICOAGULANT THERAPY
     Route: 048
  8. IBRUTINIB [Suspect]
     Active Substance: IBRUTINIB
     Indication: MANTLE CELL LYMPHOMA
     Route: 048

REACTIONS (3)
  - Hypertension [Unknown]
  - Pericardial effusion [Unknown]
  - Atrial fibrillation [Unknown]
